FAERS Safety Report 7119159-0 (Version None)
Quarter: 2010Q4

REPORT INFORMATION
  Report Type: 
  Country: None (occurrence: None)
  Receive Date: 20101123
  Receipt Date: 20101116
  Transmission Date: 20110411
  Serious: Yes (Other)
  Sender: FDA-Public Use
  Company Number: GB-ROCHE-743000

PATIENT
  Sex: Female

DRUGS (1)
  1. HERCEPTIN [Suspect]
     Route: 065

REACTIONS (2)
  - BLOOD PRESSURE INCREASED [None]
  - TRANSIENT ISCHAEMIC ATTACK [None]
